FAERS Safety Report 7502776-3 (Version None)
Quarter: 2011Q2

REPORT INFORMATION
  Report Type: 
  Country: None (occurrence: None)
  Receive Date: 20110524
  Receipt Date: 20110524
  Transmission Date: 20111010
  Serious: Yes (Hospitalization)
  Sender: FDA-Public Use
  Company Number: None

PATIENT
  Sex: Female
  Weight: 62.2 kg

DRUGS (2)
  1. CISPLATIN [Suspect]
     Dosage: 124 MG
     Dates: end: 20110427
  2. ETOPOSIDE [Suspect]
     Dosage: 456 MG
     Dates: end: 20110429

REACTIONS (1)
  - BAND NEUTROPHIL COUNT INCREASED [None]
